FAERS Safety Report 9300908 (Version 1)
Quarter: 2013Q2

REPORT INFORMATION
  Report Type: Spontaneous
  Country: US (occurrence: US)
  Receive Date: 20130521
  Receipt Date: 20130521
  Transmission Date: 20140414
  Serious: Yes (Life-Threatening, Hospitalization, Other)
  Sender: FDA-Public Use
  Company Number: US-ELI_LILLY_AND_COMPANY-US201305004222

PATIENT
  Sex: Female

DRUGS (12)
  1. ZYPREXA [Suspect]
     Dosage: 15 MG, QD
     Dates: start: 2007, end: 2011
  2. OLANZAPINE [Suspect]
     Dosage: 15 MG, QD
     Dates: start: 2011
  3. OLANZAPINE [Suspect]
     Dosage: 20 MG, QD
  4. COREG [Concomitant]
  5. LABETALOL [Concomitant]
  6. PLAVIX [Concomitant]
  7. VITAMIN E                            /001105/ [Concomitant]
  8. FUROSEMIDE [Concomitant]
  9. PANTOPRAZOLE [Concomitant]
  10. LIPITOR [Concomitant]
  11. BABY ASPIRIN [Concomitant]
     Dosage: 80 MG, QD
  12. SYNTHYROID [Concomitant]

REACTIONS (6)
  - Cardiac arrest [Recovered/Resolved]
  - Myocardial infarction [Not Recovered/Not Resolved]
  - Arrhythmia [Not Recovered/Not Resolved]
  - Pulmonary oedema [Not Recovered/Not Resolved]
  - Cognitive disorder [Not Recovered/Not Resolved]
  - Slow speech [Not Recovered/Not Resolved]
